FAERS Safety Report 11619956 (Version 2)
Quarter: 2015Q4

REPORT INFORMATION
  Report Type: Spontaneous
  Country: US (occurrence: US)
  Receive Date: 20151012
  Receipt Date: 20151109
  Transmission Date: 20160304
  Serious: No
  Sender: FDA-Public Use
  Company Number: US-PFIZER INC-2015339796

PATIENT
  Age: 79 Year
  Sex: Female
  Weight: 59 kg

DRUGS (2)
  1. VIBRAMYCIN [Suspect]
     Active Substance: DOXYCYCLINE
     Indication: TOOTH DISORDER
     Dosage: UNK, 2X/DAY (50 MG 5 ML)
  2. VIBRAMYCIN [Suspect]
     Active Substance: DOXYCYCLINE
     Indication: GINGIVAL DISORDER

REACTIONS (3)
  - Wrong technique in product usage process [Unknown]
  - Drug ineffective [Unknown]
  - Product colour issue [Unknown]
